FAERS Safety Report 9418203 (Version 1)
Quarter: 2013Q3

REPORT INFORMATION
  Report Type: Spontaneous
  Country: FR (occurrence: FR)
  Receive Date: 20130724
  Receipt Date: 20130724
  Transmission Date: 20140515
  Serious: Yes (Other)
  Sender: FDA-Public Use
  Company Number: FR-PFIZER INC-2013213903

PATIENT
  Age: 83 Year
  Sex: Female

DRUGS (14)
  1. LYRICA [Suspect]
     Indication: BIPOLAR I DISORDER
     Dosage: 25 MG, 3X/DAY
     Route: 048
     Dates: start: 20130426, end: 20130429
  2. NORSET [Suspect]
     Indication: BIPOLAR I DISORDER
     Dosage: 15 MG, 1X/DAY
     Route: 048
  3. NORSET [Suspect]
     Dosage: 30 MG, 1X/DAY
     Route: 048
     Dates: start: 20130426, end: 20130430
  4. SERESTA [Suspect]
     Dosage: 10 MG, 1X/DAY
     Route: 048
     Dates: start: 20130420, end: 20130424
  5. SERESTA [Suspect]
     Dosage: 10 MG, 4X/DAY
     Route: 048
     Dates: start: 20130425
  6. DEPAKINE [Concomitant]
     Dosage: 1000 MG, 1X/DAY
     Route: 048
     Dates: end: 20130420
  7. INEXIUM [Concomitant]
     Dosage: 20 MG, 1X/DAY
     Route: 048
     Dates: start: 20130314
  8. PERFALGAN [Concomitant]
     Dosage: 3 G, 1X/DAY
     Dates: start: 20130414, end: 20130421
  9. NEFOPAM MYLAN [Concomitant]
     Dosage: 3 DF, 1X/DAY
     Route: 042
     Dates: start: 20130414, end: 20130422
  10. DOMPERIDONE ALMUS [Concomitant]
     Dosage: 1 MG/ML, 3X/DAY
     Route: 048
     Dates: start: 20130414, end: 20130430
  11. ACTISKENAN [Concomitant]
     Dosage: UNK
     Route: 048
     Dates: start: 20120414, end: 20130421
  12. DIFFU K [Concomitant]
     Dosage: 2 DF, 3X/DAY
     Route: 048
     Dates: start: 20130416
  13. LOVENOX [Concomitant]
     Dosage: 4000 IU, 1X/DAY
     Route: 058
     Dates: start: 20130418
  14. PREVISCAN [Concomitant]
     Indication: DEEP VEIN THROMBOSIS
     Dosage: UNK
     Route: 048
     Dates: start: 201204, end: 20130413

REACTIONS (1)
  - Hallucination, visual [Recovered/Resolved]
